FAERS Safety Report 23884580 (Version 1)
Quarter: 2024Q2

REPORT INFORMATION
  Report Type: Spontaneous
  Country: US (occurrence: US)
  Receive Date: 20240522
  Receipt Date: 20240522
  Transmission Date: 20240716
  Serious: Yes (Life-Threatening, Hospitalization)
  Sender: FDA-Public Use
  Company Number: US-MYLANLABS-2024M1045794

PATIENT
  Age: 2 Week
  Sex: Female

DRUGS (2)
  1. SODIUM NITROPRUSSIDE [Suspect]
     Active Substance: SODIUM NITROPRUSSIDE
     Indication: Hypertension
     Dosage: UNK, INTRAVENOUS INFUSION
     Route: 042
  2. FENOLDOPAM [Suspect]
     Active Substance: FENOLDOPAM
     Indication: Hypertension
     Dosage: UNK, INTRAVENOUS INFUSION
     Route: 042

REACTIONS (3)
  - Toxicity to various agents [Recovered/Resolved]
  - Blood cyanide increased [Recovered/Resolved]
  - Drug ineffective [Unknown]
